FAERS Safety Report 15969556 (Version 2)
Quarter: 2019Q4

REPORT INFORMATION
  Report Type: Report from Study
  Country: US (occurrence: US)
  Receive Date: 20190215
  Receipt Date: 20191126
  Transmission Date: 20200122
  Serious: Yes (Life-Threatening)
  Sender: FDA-Public Use
  Company Number: US-BAUSCH-BL-2019-004784

PATIENT
  Sex: Female

DRUGS (1)
  1. ELIDEL [Suspect]
     Active Substance: PIMECROLIMUS
     Indication: ECZEMA
     Dosage: THE PATIENT WAS USING 60 GRAM TUBE AND TOTAL DOCUMENTED USE WAS 210 GRAMS
     Route: 065

REACTIONS (1)
  - Neoplasm malignant [Unknown]
